FAERS Safety Report 20573283 (Version 1)
Quarter: 2022Q1

REPORT INFORMATION
  Report Type: Spontaneous
  Country: US (occurrence: None)
  Receive Date: 20220309
  Receipt Date: 20220309
  Transmission Date: 20220423
  Serious: No
  Sender: FDA-Public Use
  Company Number: 2022A077846

PATIENT
  Sex: Female
  Weight: 77.1 kg

DRUGS (1)
  1. BYETTA [Suspect]
     Active Substance: EXENATIDE
     Indication: Insulin resistant diabetes
     Dosage: 250MCG/2.4ML
     Route: 058

REACTIONS (7)
  - COVID-19 [Recovered/Resolved]
  - Malaise [Unknown]
  - Weight decreased [Unknown]
  - Glycosylated haemoglobin decreased [Unknown]
  - Product dose omission issue [Unknown]
  - Device leakage [Unknown]
  - Product use issue [Unknown]
